FAERS Safety Report 15348683 (Version 3)
Quarter: 2019Q2

REPORT INFORMATION
  Report Type: Spontaneous
  Country: US (occurrence: US)
  Receive Date: 20180904
  Receipt Date: 20190520
  Transmission Date: 20190711
  Serious: Yes (Other)
  Sender: FDA-Public Use
  Company Number: US-ALKERMES INC.-ALK-2018-003878

PATIENT
  Age: 46 Year
  Sex: Female
  Weight: 43.99 kg

DRUGS (5)
  1. VIVITROL [Suspect]
     Active Substance: NALTREXONE
     Indication: ALCOHOLISM
     Dosage: 380 MG, QMO
     Route: 030
     Dates: start: 2015
  2. TRAZODONE [Concomitant]
     Active Substance: TRAZODONE HYDROCHLORIDE
     Indication: PRODUCT USED FOR UNKNOWN INDICATION
  3. LUMIDOL [Concomitant]
     Indication: PRODUCT USED FOR UNKNOWN INDICATION
  4. VRAYLAR [Concomitant]
     Active Substance: CARIPRAZINE
     Indication: PRODUCT USED FOR UNKNOWN INDICATION
  5. CLONAZEPAM. [Concomitant]
     Active Substance: CLONAZEPAM
     Indication: PRODUCT USED FOR UNKNOWN INDICATION

REACTIONS (10)
  - Injection site scar [Recovering/Resolving]
  - Injection site reaction [Recovering/Resolving]
  - Weight decreased [Recovering/Resolving]
  - Injection site mass [Recovering/Resolving]
  - Injection site abscess [Recovering/Resolving]
  - Ill-defined disorder [Recovering/Resolving]
  - Product administration error [Recovered/Resolved]
  - Injection site bruising [Recovering/Resolving]
  - Injection site nodule [Recovering/Resolving]
  - Injection site pain [Recovering/Resolving]

NARRATIVE: CASE EVENT DATE: 20180717
